FAERS Safety Report 7421856-4 (Version None)
Quarter: 2011Q2

REPORT INFORMATION
  Report Type: 
  Country: None (occurrence: None)
  Receive Date: 20110418
  Receipt Date: 20110408
  Transmission Date: 20111010
  Serious: Yes (Other)
  Sender: FDA-Public Use
  Company Number: US-ASTRAZENECA-2011SE20282

PATIENT
  Age: 32 Year
  Sex: Female
  Weight: 74.8 kg

DRUGS (3)
  1. SEROQUEL [Suspect]
     Route: 048
     Dates: start: 20110301
  2. SEROQUEL [Suspect]
     Route: 048
     Dates: start: 20100501, end: 20110301
  3. SEROQUEL [Suspect]
     Indication: BIPOLAR II DISORDER
     Route: 048
     Dates: start: 20100401, end: 20100501

REACTIONS (9)
  - SOMNOLENCE [None]
  - LOSS OF CONSCIOUSNESS [None]
  - HEAD INJURY [None]
  - FEELING ABNORMAL [None]
  - ASTHENIA [None]
  - WEIGHT INCREASED [None]
  - INCREASED APPETITE [None]
  - FATIGUE [None]
  - DRUG WITHDRAWAL SYNDROME [None]
